FAERS Safety Report 5853993-X (Version None)
Quarter: 2008Q3

REPORT INFORMATION
  Report Type: 
  Country: None (occurrence: None)
  Receive Date: 20080822
  Receipt Date: 20080819
  Transmission Date: 20090109
  Serious: Yes (Other)
  Sender: FDA-Public Use
  Company Number: KR-ASTRAZENECA-2008AP06361

PATIENT
  Age: 18 Year
  Sex: Male

DRUGS (1)
  1. BUPIVACAINE [Suspect]
     Indication: COLECTOMY
     Route: 037

REACTIONS (1)
  - MYOCLONUS [None]
